FAERS Safety Report 18938059 (Version 2)
Quarter: 2022Q1

REPORT INFORMATION
  Report Type: Other
  Country: MG (occurrence: None)
  Receive Date: 20210224
  Receipt Date: 20220125
  Transmission Date: 20220423
  Serious: Yes (Disabling, Other)
  Sender: FDA-Public Use
  Company Number: MG-DEXPHARM-20210166

PATIENT
  Age: 7 Year
  Sex: Male

DRUGS (4)
  1. PENICILLIN G BENZATHINE [Interacting]
     Active Substance: PENICILLIN G BENZATHINE
  2. DICLOFENAC [Interacting]
     Active Substance: DICLOFENAC
  3. METHYLPREDNISOLONE [Concomitant]
     Active Substance: METHYLPREDNISOLONE
     Dosage: METHYLPREDNISOLONE (2 MG/KG/8 H)
  4. amoxicillin+#8211;clavulanate [Concomitant]
     Dosage: AMOXICILLIN+#8211;CLAVULANATE THERAPY (25 MG/KG/8 H)

REACTIONS (6)
  - Embolia cutis medicamentosa [Not Recovered/Not Resolved]
  - Compartment syndrome [Not Recovered/Not Resolved]
  - Peripheral ischaemia [Not Recovered/Not Resolved]
  - Medication error [Unknown]
  - Intentional product misuse [Unknown]
  - Drug interaction [Unknown]
